FAERS Safety Report 5329737-7 (Version None)
Quarter: 2007Q2

REPORT INFORMATION
  Report Type: 
  Country: None (occurrence: None)
  Receive Date: 20070515
  Receipt Date: 20070503
  Transmission Date: 20071010
  Serious: Yes (Hospitalization, Other)
  Sender: FDA-Public Use
  Company Number: GXKR2007CH04038

PATIENT
  Age: 72 Year
  Sex: Female

DRUGS (5)
  1. ECOFENAC (NGX) (DICLOFENAC) UNKNOWN [Suspect]
     Indication: BACK PAIN
     Dosage: AS NECESSARY, ORAL
     Route: 048
     Dates: end: 20070320
  2. DIOVAN HCT [Concomitant]
  3. PRAVASTATIN [Concomitant]
  4. LANSOPRAZOLE [Concomitant]
  5. DAFALGAN (PARACETAMOL) [Concomitant]

REACTIONS (8)
  - CARDIOVASCULAR DISORDER [None]
  - CAROTID ARTERY STENOSIS [None]
  - CEREBRAL ISCHAEMIA [None]
  - CEREBROVASCULAR ACCIDENT [None]
  - GASTROINTESTINAL ULCER HAEMORRHAGE [None]
  - IRON DEFICIENCY ANAEMIA [None]
  - LARGE INTESTINAL ULCER [None]
  - VENTRICULAR TACHYCARDIA [None]
